FAERS Safety Report 7299579-4 (Version None)
Quarter: 2011Q1

REPORT INFORMATION
  Report Type: 
  Country: None (occurrence: None)
  Receive Date: 20110217
  Receipt Date: 20110216
  Transmission Date: 20110831
  Serious: Yes (Hospitalization)
  Sender: FDA-Public Use
  Company Number: ES-ABBOTT-11P-144-0705430-00

PATIENT
  Age: 27 Year
  Sex: Male

DRUGS (3)
  1. HUMIRA [Suspect]
     Indication: CROHN'S DISEASE
     Dosage: LOAD DOSE 160MG; SECOND DOSE 40MG
     Route: 058
     Dates: start: 20110101, end: 20110214
  2. CORTICOIDS [Concomitant]
     Indication: CROHN'S DISEASE
     Dates: start: 20110101
  3. IMUREL [Concomitant]
     Indication: CROHN'S DISEASE
     Dosage: 150MG DAILY
     Route: 048
     Dates: start: 20100101

REACTIONS (4)
  - GAIT DISTURBANCE [None]
  - ARTHRALGIA [None]
  - ASTHENIA [None]
  - PYREXIA [None]
